FAERS Safety Report 8429506-5 (Version None)
Quarter: 2012Q2

REPORT INFORMATION
  Report Type: 
  Country: None (occurrence: None)
  Receive Date: 20120612
  Receipt Date: 20120608
  Transmission Date: 20120825
  Serious: Yes (Other)
  Sender: FDA-Public Use
  Company Number: SE-SANOFI-AVENTIS-2012SA040943

PATIENT
  Age: 67 Year
  Sex: Male
  Weight: 85 kg

DRUGS (3)
  1. LANTUS [Suspect]
     Indication: DIABETES MELLITUS
     Dosage: DOSE- 12-13 IU/NIGHTDURATION- SINCE SEVERAL YEARS
     Route: 065
  2. SOLOSTAR [Suspect]
     Indication: DEVICE THERAPY
  3. PAROXETINE HCL [Concomitant]

REACTIONS (2)
  - HYPOGLYCAEMIA [None]
  - VISUAL IMPAIRMENT [None]
